FAERS Safety Report 6584157-2 (Version None)
Quarter: 2010Q1

REPORT INFORMATION
  Report Type: 
  Country: None (occurrence: None)
  Receive Date: 20100213
  Receipt Date: 20100213
  Transmission Date: 20100710
  Serious: No
  Sender: FDA-Public Use
  Company Number: None

PATIENT
  Sex: Female
  Weight: 106.5953 kg

DRUGS (2)
  1. WELLBUTRIN [Suspect]
     Indication: CRYING
     Dosage: 1 TABLET 1 PER DAY PO
     Route: 048
     Dates: start: 19951001, end: 20100201
  2. WELLBUTRIN [Suspect]
     Indication: STRESS
     Dosage: 1 TABLET 1 PER DAY PO
     Route: 048
     Dates: start: 19951001, end: 20100201

REACTIONS (3)
  - ALOPECIA [None]
  - CONFUSIONAL STATE [None]
  - MEMORY IMPAIRMENT [None]
